FAERS Safety Report 12548747 (Version 1)
Quarter: 2016Q3

REPORT INFORMATION
  Report Type: Spontaneous
  Country: JP (occurrence: JP)
  Receive Date: 20160712
  Receipt Date: 20160712
  Transmission Date: 20161109
  Serious: Yes (Other)
  Sender: FDA-Public Use
  Company Number: JP-JNJFOC-20160622283

PATIENT

DRUGS (1)
  1. INFLIXIMAB, RECOMBINANT [Suspect]
     Active Substance: INFLIXIMAB
     Indication: BEHCET^S SYNDROME
     Route: 042

REACTIONS (7)
  - Enteritis infectious [Recovering/Resolving]
  - Adverse drug reaction [Recovering/Resolving]
  - Nasopharyngitis [Recovering/Resolving]
  - Gastroenteritis [Recovering/Resolving]
  - Respiratory tract infection [Recovering/Resolving]
  - Behcet^s syndrome [Recovering/Resolving]
  - Infusion related reaction [Recovering/Resolving]
